FAERS Safety Report 6316476-9 (Version None)
Quarter: 2009Q3

REPORT INFORMATION
  Report Type: 
  Country: None (occurrence: None)
  Receive Date: 20090820
  Receipt Date: 20090812
  Transmission Date: 20100115
  Serious: Yes (Other)
  Sender: FDA-Public Use
  Company Number: US-BAYER-200927000NA

PATIENT
  Age: 20 Year
  Sex: Female

DRUGS (2)
  1. MIRENA [Suspect]
     Indication: CONTRACEPTION
     Dosage: CONTINUOUS DELIVERY
     Route: 015
     Dates: start: 20090517, end: 20090517
  2. MIRENA [Suspect]
     Dosage: CONTINUOUS DELIVERY
     Route: 015

REACTIONS (2)
  - ABORTION SPONTANEOUS [None]
  - PREGNANCY [None]
